FAERS Safety Report 7820421-4 (Version None)
Quarter: 2011Q4

REPORT INFORMATION
  Report Type: 
  Country: None (occurrence: None)
  Receive Date: 20111018
  Receipt Date: 20111012
  Transmission Date: 20120403
  Serious: Yes (Death)
  Sender: FDA-Public Use
  Company Number: US-CELGENEUS-163-21880-11083371

PATIENT
  Sex: Male
  Weight: 74.8 kg

DRUGS (10)
  1. REVLIMID [Suspect]
     Dosage: 10 MILLIGRAM
     Route: 048
     Dates: start: 20110501
  2. PREDNISONE [Concomitant]
     Dosage: 80 MILLIGRAM
     Route: 048
     Dates: start: 20110709, end: 20110713
  3. REVLIMID [Suspect]
     Dosage: 10 MILLIGRAM
     Route: 048
     Dates: start: 20100501
  4. REVLIMID [Suspect]
     Dosage: 10 MILLIGRAM
     Route: 048
     Dates: start: 20110803, end: 20110809
  5. MELPHALAN HYDROCHLORIDE [Concomitant]
     Dosage: 12 MILLIGRAM
     Route: 048
     Dates: start: 20110709, end: 20110713
  6. REVLIMID [Suspect]
     Dosage: 5-10MG
     Route: 048
     Dates: start: 20110701
  7. FLUIDS [Concomitant]
     Route: 065
  8. PRESSORS [Concomitant]
     Route: 065
  9. REVLIMID [Suspect]
     Dosage: 15 MILLIGRAM
     Route: 048
     Dates: start: 20100501
  10. ANTIBIOTICS [Concomitant]
     Route: 065

REACTIONS (3)
  - SHOCK [None]
  - SEPSIS [None]
  - BACTERAEMIA [None]
